FAERS Safety Report 5330823-6 (Version None)
Quarter: 2007Q2

REPORT INFORMATION
  Report Type: 
  Country: None (occurrence: None)
  Receive Date: 20070227
  Receipt Date: 20060804
  Transmission Date: 20071010
  Serious: Yes (Hospitalization)
  Sender: FDA-Public Use
  Company Number: 458437

PATIENT
  Age: 27 Year
  Sex: Male
  Weight: 72.6 kg

DRUGS (1)
  1. ACCUTANE [Suspect]
     Indication: ACNE CYSTIC
     Dosage: 40 MG 2 PER DAY OTHER
     Dates: start: 19970128, end: 19980315

REACTIONS (11)
  - ANXIETY [None]
  - ARTHRALGIA [None]
  - ASTHENIA [None]
  - COLITIS [None]
  - COLITIS ULCERATIVE [None]
  - CROHN'S DISEASE [None]
  - DEPRESSION [None]
  - HEADACHE [None]
  - INFLAMMATORY BOWEL DISEASE [None]
  - PANCREATITIS [None]
  - VISUAL DISTURBANCE [None]
